FAERS Safety Report 6260125-5 (Version None)
Quarter: 2009Q3

REPORT INFORMATION
  Report Type: 
  Country: None (occurrence: None)
  Receive Date: 20090706
  Receipt Date: 20090623
  Transmission Date: 20100115
  Serious: Yes (Life-Threatening)
  Sender: FDA-Public Use
  Company Number: ADE2009-0684

PATIENT
  Age: 50 Year
  Sex: Male

DRUGS (2)
  1. MIRTAZAPINE [Suspect]
     Indication: DEPRESSION
     Dosage: 15MG, UNK, ORAL
     Route: 048
     Dates: start: 20090315, end: 20090409
  2. METHADONE HCL [Concomitant]

REACTIONS (1)
  - HEPATIC ENCEPHALOPATHY [None]
